FAERS Safety Report 8882840 (Version 1)
Quarter: 2012Q4

REPORT INFORMATION
  Report Type: 
  Country: US (occurrence: US)
  Receive Date: 20121102
  Receipt Date: 20121102
  Transmission Date: 20130627
  Serious: No
  Sender: FDA-Public Use
  Company Number: US-ASTRAZENECA-2011SE69840

PATIENT

DRUGS (1)
  1. CRESTOR [Suspect]
     Route: 048
     Dates: start: 20110428

REACTIONS (5)
  - Dementia [Unknown]
  - Abasia [Unknown]
  - Urinary tract infection [Unknown]
  - Communication disorder [Unknown]
  - Blood creatine phosphokinase increased [Unknown]
